FAERS Safety Report 8935956 (Version 1)
Quarter: 2012Q4

REPORT INFORMATION
  Report Type: 
  Country: US (occurrence: US)
  Receive Date: 20121130
  Receipt Date: 20121130
  Transmission Date: 20130627
  Serious: No
  Sender: FDA-Public Use
  Company Number: US-BAYER-2012-125492

PATIENT

DRUGS (6)
  1. ALEVE CAPLET/TABLET,MIDOL EXTENDED RELIEF CAPLET [Suspect]
     Indication: HEADACHE NOS
     Dosage: UNK
  2. BAYER GENUINE ASPIRIN ORIGINAL STRENGTH [Suspect]
     Indication: HEADACHE
     Dosage: UNK
  3. IBUPROFEN [Concomitant]
     Dosage: UNK
  4. TYLENOL NOS [Concomitant]
  5. MOTRIN [Concomitant]
  6. GOODYS [Concomitant]
     Dosage: UNK

REACTIONS (1)
  - Drug ineffective [None]
